FAERS Safety Report 10339943 (Version 1)
Quarter: 2014Q3

REPORT INFORMATION
  Report Type: Spontaneous
  Country: IT (occurrence: None)
  Receive Date: 20140722
  Receipt Date: 20140722
  Transmission Date: 20150326
  Serious: Yes (Other)
  Sender: FDA-Public Use
  Company Number: AUR-APL-2014-07799

PATIENT
  Age: 46 Year
  Sex: Female

DRUGS (2)
  1. AMOXICILLIN TABLET (AMOXICILLIN) TABLET [Suspect]
     Active Substance: AMOXICILLIN
     Indication: ANTIBIOTIC PROPHYLAXIS
     Route: 048
     Dates: start: 20131204, end: 20131215
  2. VOLTFAST [Suspect]
     Active Substance: DICLOFENAC POTASSIUM
     Indication: TENDERNESS
     Route: 048
     Dates: start: 20131213, end: 20131215

REACTIONS (2)
  - Angioedema [None]
  - Urticaria [None]

NARRATIVE: CASE EVENT DATE: 20131215
